FAERS Safety Report 16993964 (Version 2)
Quarter: 2020Q1

REPORT INFORMATION
  Report Type: Spontaneous
  Country: IT (occurrence: IT)
  Receive Date: 20191105
  Receipt Date: 20200226
  Transmission Date: 20200409
  Serious: Yes (Hospitalization, Other)
  Sender: FDA-Public Use
  Company Number: IT-ROCHE-625447

PATIENT
  Age: 5 Month
  Sex: Female

DRUGS (5)
  1. CYCLOSPORINE. [Suspect]
     Active Substance: CYCLOSPORINE
     Indication: AUTOIMMUNE HAEMOLYTIC ANAEMIA
     Route: 065
  2. CYCLOSPORINE. [Suspect]
     Active Substance: CYCLOSPORINE
     Route: 065
  3. RITUXIMAB. [Suspect]
     Active Substance: RITUXIMAB
     Indication: AUTOIMMUNE HAEMOLYTIC ANAEMIA
     Route: 065
  4. RITUXIMAB. [Suspect]
     Active Substance: RITUXIMAB
     Dosage: EVERY 4 WEEKLY DOSES
     Route: 065
  5. PREDNISONE. [Suspect]
     Active Substance: PREDNISONE
     Indication: AUTOIMMUNE HAEMOLYTIC ANAEMIA
     Route: 065

REACTIONS (8)
  - Autoimmune lymphoproliferative syndrome [Unknown]
  - Autoimmune haemolytic anaemia [Recovering/Resolving]
  - CD4 lymphocytes increased [Unknown]
  - Immune thrombocytopenic purpura [Unknown]
  - Therapy non-responder [Recovering/Resolving]
  - Disease recurrence [Unknown]
  - CD8 lymphocytes increased [Unknown]
  - Cushingoid [Recovered/Resolved]
